FAERS Safety Report 8322795-7 (Version None)
Quarter: 2012Q2

REPORT INFORMATION
  Report Type: 
  Country: None (occurrence: None)
  Receive Date: 20120430
  Receipt Date: 20120420
  Transmission Date: 20120825
  Serious: Yes (Hospitalization)
  Sender: FDA-Public Use
  Company Number: FR-ROCHE-1039284

PATIENT
  Sex: Male

DRUGS (2)
  1. PREDNISONE [Suspect]
     Indication: MALIGNANT LYMPHOID NEOPLASM
     Route: 048
     Dates: start: 20120119, end: 20120123
  2. MABTHERA [Suspect]
     Indication: MALIGNANT LYMPHOID NEOPLASM

REACTIONS (2)
  - THROMBOSIS IN DEVICE [None]
  - INFECTIVE THROMBOSIS [None]
